FAERS Safety Report 7085136-1 (Version None)
Quarter: 2010Q4

REPORT INFORMATION
  Report Type: 
  Country: None (occurrence: None)
  Receive Date: 20101028
  Receipt Date: 20101022
  Transmission Date: 20110411
  Serious: Yes (Other)
  Sender: FDA-Public Use
  Company Number: A0888361A

PATIENT
  Sex: Female

DRUGS (4)
  1. BENZOYL PEROXIDE FOAM (BENZOYL PEROXIDE) [Suspect]
     Indication: PRODUCT USED FOR UNKNOWN INDICATION
     Dosage: TOPICAL
     Route: 061
     Dates: start: 20100918, end: 20100921
  2. BENZOYL PEROXIDE FOAM (BENZOYL PEROXIDE) [Suspect]
     Indication: PRODUCT USED FOR UNKNOWN INDICATION
     Dosage: PER DAY / TOPICAL
     Route: 061
     Dates: start: 20100918, end: 20100921
  3. SALICYLIC ACID (FORMULATION UNKNOWN) (SALICYLIC ACID) [Suspect]
     Indication: PRODUCT USED FOR UNKNOWN INDICATION
     Dosage: PER DAY / TOPICAL
     Route: 061
     Dates: start: 20100918, end: 20100921
  4. BENZOYL PEROXIDE WASH (BENZOYL PEROXIDE) [Suspect]
     Indication: PRODUCT USED FOR UNKNOWN INDICATION
     Dosage: TOPICAL
     Route: 061
     Dates: start: 20100918, end: 20100921

REACTIONS (1)
  - HAEMORRHAGE [None]
